FAERS Safety Report 5412127-6 (Version None)
Quarter: 2007Q3

REPORT INFORMATION
  Report Type: 
  Country: None (occurrence: None)
  Receive Date: 20070713
  Receipt Date: 20070330
  Transmission Date: 20080115
  Serious: No
  Sender: FDA-Public Use
  Company Number: 2007SP001160

PATIENT
  Age: 84 Year
  Sex: Male
  Weight: 96.3894 kg

DRUGS (5)
  1. LUNESTA [Suspect]
     Indication: INSOMNIA
     Dosage: 3 MG; ORAL
     Route: 048
     Dates: start: 20061101
  2. ATORVASTATIN CALCIUM [Concomitant]
  3. ATENOLOL [Concomitant]
  4. FOLIC ACID [Concomitant]
  5. ASPIRIN [Concomitant]

REACTIONS (1)
  - DRUG EFFECT DECREASED [None]
